FAERS Safety Report 25817108 (Version 1)
Quarter: 2025Q3

REPORT INFORMATION
  Report Type: Spontaneous
  Country: GB (occurrence: GB)
  Receive Date: 20250918
  Receipt Date: 20250918
  Transmission Date: 20251021
  Serious: Yes (Death, Hospitalization)
  Sender: SOMERSET THERAPEUTICS, LLC
  Company Number: GB-MIT-25-75-GB-2025-SOM-LIT-00029

PATIENT

DRUGS (1)
  1. NALOXONE HYDROCHLORIDE [Suspect]
     Active Substance: NALOXONE HYDROCHLORIDE
     Indication: Reversal of opiate activity
     Route: 065

REACTIONS (2)
  - Respiratory distress [Fatal]
  - Incorrect dose administered [Unknown]
